FAERS Safety Report 7383283-8 (Version None)
Quarter: 2011Q1

REPORT INFORMATION
  Report Type: 
  Country: None (occurrence: None)
  Receive Date: 20110324
  Receipt Date: 20110324
  Transmission Date: 20110831
  Serious: Yes (Other)
  Sender: FDA-Public Use
  Company Number: None

PATIENT
  Age: 48 Year
  Sex: Female
  Weight: 58.0604 kg

DRUGS (1)
  1. CYMBALTA [Suspect]
     Indication: DEPRESSION
     Dosage: 20MG 1 PER DAY PO
     Route: 048
     Dates: start: 20100204, end: 20100517

REACTIONS (5)
  - URINARY RETENTION [None]
  - STRESS [None]
  - MICTURITION URGENCY [None]
  - SLEEP DISORDER [None]
  - BURNING SENSATION [None]
